FAERS Safety Report 15494675 (Version 1)
Quarter: 2018Q4

REPORT INFORMATION
  Report Type: Spontaneous
  Country: NL (occurrence: NL)
  Receive Date: 20181012
  Receipt Date: 20181012
  Transmission Date: 20190205
  Serious: Yes (Hospitalization, Other)
  Sender: FDA-Public Use
  Company Number: NL-UNICHEM PHARMACEUTICALS (USA) INC-UCM201809-000251

PATIENT
  Age: 23 Year
  Sex: Male

DRUGS (1)
  1. QUETIAPINE. [Suspect]
     Active Substance: QUETIAPINE
     Dosage: TOTAL DOSE: 6000-7500 MG

REACTIONS (9)
  - Abdominal pain [Unknown]
  - Abnormal behaviour [Unknown]
  - Overdose [Unknown]
  - Poisoning [Unknown]
  - Restlessness [Unknown]
  - Urinary retention [Unknown]
  - Tachycardia [Unknown]
  - Miosis [Unknown]
  - Delirium [Recovered/Resolved]
